FAERS Safety Report 8372848-2 (Version None)
Quarter: 2012Q2

REPORT INFORMATION
  Report Type: 
  Country: None (occurrence: None)
  Receive Date: 20120521
  Receipt Date: 20120514
  Transmission Date: 20120825
  Serious: Yes (Death, Hospitalization)
  Sender: FDA-Public Use
  Company Number: FR-PFIZER INC-2012121007

PATIENT
  Age: 79 Year
  Sex: Female

DRUGS (3)
  1. CAPTOPRIL [Concomitant]
  2. CORDARONE [Suspect]
     Dosage: UNK
     Route: 065
  3. LASIX [Suspect]
     Dosage: UNK
     Route: 065

REACTIONS (2)
  - HAEMORRHAGE [None]
  - FALL [None]
